FAERS Safety Report 5460991-7 (Version None)
Quarter: 2007Q3

REPORT INFORMATION
  Report Type: 
  Country: None (occurrence: None)
  Receive Date: 20070822
  Receipt Date: 20070518
  Transmission Date: 20080115
  Serious: Yes (Other)
  Sender: FDA-Public Use
  Company Number: 2007039820

PATIENT
  Sex: Female

DRUGS (1)
  1. NORVASC [Suspect]
     Dates: start: 20070101

REACTIONS (4)
  - DYSPNOEA [None]
  - HYPERSENSITIVITY [None]
  - TOTAL LUNG CAPACITY DECREASED [None]
  - WHEEZING [None]
